FAERS Safety Report 11046288 (Version 1)
Quarter: 2015Q2

REPORT INFORMATION
  Report Type: Spontaneous
  Country: DE (occurrence: DE)
  Receive Date: 20150418
  Receipt Date: 20150418
  Transmission Date: 20150821
  Serious: Yes (Hospitalization, Other)
  Sender: FDA-Public Use
  Company Number: PHHY2015DE045715

PATIENT
  Age: 66 Year
  Sex: Male

DRUGS (2)
  1. LEPONEX [Suspect]
     Active Substance: CLOZAPINE
     Indication: PSYCHOTIC DISORDER
     Dosage: 150 MG, QD
     Route: 065
  2. LEPONEX [Suspect]
     Active Substance: CLOZAPINE
     Indication: HALLUCINATION

REACTIONS (8)
  - Lymphocytic leukaemia [Unknown]
  - Fatigue [Unknown]
  - Gait disturbance [Unknown]
  - Pyrexia [Unknown]
  - Malignant melanoma [Unknown]
  - Dementia [Unknown]
  - Renal disorder [Unknown]
  - Infection [Unknown]

NARRATIVE: CASE EVENT DATE: 2014
